FAERS Safety Report 17704404 (Version 1)
Quarter: 2020Q2

REPORT INFORMATION
  Report Type: Spontaneous
  Country: US (occurrence: US)
  Receive Date: 20200423
  Receipt Date: 20200423
  Transmission Date: 20200714
  Serious: Yes (Hospitalization)
  Sender: FDA-Public Use
  Company Number: None

PATIENT
  Age: 55 Year
  Sex: Male

DRUGS (18)
  1. MUCINEX D [Concomitant]
     Active Substance: GUAIFENESIN\PSEUDOEPHEDRINE HYDROCHLORIDE
  2. GABAPENTIN. [Concomitant]
     Active Substance: GABAPENTIN
  3. MELOXICAM. [Concomitant]
     Active Substance: MELOXICAM
  4. CALCIUM/D [Concomitant]
  5. METHADONE [Concomitant]
     Active Substance: METHADONE HYDROCHLORIDE
  6. CITALOPRAM [Concomitant]
     Active Substance: CITALOPRAM HYDROBROMIDE
  7. TRAMADOL. [Concomitant]
     Active Substance: TRAMADOL
  8. PREDNISONE. [Concomitant]
     Active Substance: PREDNISONE
  9. MODAFINIL. [Concomitant]
     Active Substance: MODAFINIL
  10. ATORVASTATIN [Concomitant]
     Active Substance: ATORVASTATIN
  11. HUMIRA [Suspect]
     Active Substance: ADALIMUMAB
     Indication: RHEUMATOID ARTHRITIS
  12. SPIRONOLACTONE. [Concomitant]
     Active Substance: SPIRONOLACTONE
  13. JANUMET [Concomitant]
     Active Substance: METFORMIN HYDROCHLORIDE\SITAGLIPTIN PHOSPHATE
  14. VITAMIN D 1000 IU [Concomitant]
  15. MIRALAX POWDER PACKS [Concomitant]
  16. GARLIC. [Concomitant]
     Active Substance: GARLIC
  17. FOLIC ACID. [Concomitant]
     Active Substance: FOLIC ACID
  18. ALBUTEROL HFA [Concomitant]
     Active Substance: ALBUTEROL SULFATE

REACTIONS (1)
  - Deep vein thrombosis [None]

NARRATIVE: CASE EVENT DATE: 20200421
